FAERS Safety Report 15742141 (Version 2)
Quarter: 2018Q4

REPORT INFORMATION
  Report Type: Report from Study
  Country: US (occurrence: US)
  Receive Date: 20181219
  Receipt Date: 20181227
  Transmission Date: 20190205
  Serious: Yes (Other)
  Sender: FDA-Public Use
  Company Number: US-OTSUKA-2018_038956

PATIENT
  Sex: Female

DRUGS (2)
  1. TOLVAPTAN [Suspect]
     Active Substance: TOLVAPTAN
     Indication: CONGENITAL CYSTIC KIDNEY DISEASE
     Dosage: 45 MG, QD (EVERY MORNING)
     Route: 048
     Dates: start: 20181016, end: 20181211
  2. TOLVAPTAN [Suspect]
     Active Substance: TOLVAPTAN
     Dosage: 15 MG, QD (8 HOURS LATER)
     Route: 048
     Dates: start: 20181016, end: 20181211

REACTIONS (2)
  - Glomerular filtration rate decreased [Unknown]
  - Blood creatinine increased [Unknown]
